FAERS Safety Report 4490538-3 (Version None)
Quarter: 2004Q4

REPORT INFORMATION
  Report Type: 
  Country: None (occurrence: None)
  Receive Date: 20041028
  Receipt Date: 20041014
  Transmission Date: 20050328
  Serious: No
  Sender: FDA-Public Use
  Company Number: 2004CG02087

PATIENT
  Age: 50 Year
  Sex: Female

DRUGS (1)
  1. NOLVADEX [Suspect]
     Indication: OVARIAN CANCER
     Dosage: 80 MG DAILY PO
     Route: 048
     Dates: start: 20040901

REACTIONS (2)
  - OVERDOSE [None]
  - UVEITIS [None]
